FAERS Safety Report 7472815-7 (Version None)
Quarter: 2011Q1

REPORT INFORMATION
  Report Type: 
  Country: None (occurrence: None)
  Receive Date: 20110302
  Receipt Date: 20100727
  Transmission Date: 20110831
  Serious: Yes (Hospitalization, Other)
  Sender: FDA-Public Use
  Company Number: 163-21880-10052156

PATIENT
  Age: 93 Year
  Sex: Male

DRUGS (4)
  1. MELPHALAN HYDROCHLORIDE [Concomitant]
  2. BLOOD (BLOOD AND RELATED PRODUCTS) [Concomitant]
  3. REVLIMID [Suspect]
     Indication: MULTIPLE MYELOMA
     Dosage: 10 MG, QD X 21 DAYS, PO
     Route: 048
     Dates: start: 20100324
  4. CYTOXAN [Suspect]
     Indication: PRODUCT USED FOR UNKNOWN INDICATION

REACTIONS (3)
  - HAEMOGLOBIN DECREASED [None]
  - JOINT SWELLING [None]
  - NEUTROPHIL COUNT DECREASED [None]
